FAERS Safety Report 25577116 (Version 1)
Quarter: 2025Q3

REPORT INFORMATION
  Report Type: Spontaneous
  Country: US (occurrence: US)
  Receive Date: 20250718
  Receipt Date: 20250718
  Transmission Date: 20251021
  Serious: No
  Sender: MYLAN
  Company Number: US-MYLANLABS-2025M1057908

PATIENT
  Sex: Female
  Weight: 70.76 kg

DRUGS (4)
  1. NORVASC [Suspect]
     Active Substance: AMLODIPINE BESYLATE
     Indication: Blood pressure abnormal
     Dosage: 10 MILLIGRAM, AM (ONE TABLET BY MOUTH DAILY, IN THE MORNING)
     Dates: start: 20250428
  2. NORVASC [Suspect]
     Active Substance: AMLODIPINE BESYLATE
     Dosage: 10 MILLIGRAM, AM (ONE TABLET BY MOUTH DAILY, IN THE MORNING)
     Route: 048
     Dates: start: 20250428
  3. NORVASC [Suspect]
     Active Substance: AMLODIPINE BESYLATE
     Dosage: 10 MILLIGRAM, AM (ONE TABLET BY MOUTH DAILY, IN THE MORNING)
     Route: 048
     Dates: start: 20250428
  4. NORVASC [Suspect]
     Active Substance: AMLODIPINE BESYLATE
     Dosage: 10 MILLIGRAM, AM (ONE TABLET BY MOUTH DAILY, IN THE MORNING)
     Dates: start: 20250428

REACTIONS (4)
  - Peripheral swelling [Not Recovered/Not Resolved]
  - Pain in extremity [Not Recovered/Not Resolved]
  - Musculoskeletal stiffness [Not Recovered/Not Resolved]
  - Product substitution issue [Unknown]
